FAERS Safety Report 5656627-2 (Version None)
Quarter: 2008Q1

REPORT INFORMATION
  Report Type: 
  Country: None (occurrence: None)
  Receive Date: 20080307
  Receipt Date: 20080307
  Transmission Date: 20080703
  Serious: Yes (Other)
  Sender: FDA-Public Use
  Company Number: None

PATIENT
  Sex: Female
  Weight: 32.2054 kg

DRUGS (1)
  1. TAMIFLU [Suspect]
     Indication: INFLUENZA
     Dosage: 1 TEASPOONFUL 2 TIMES DAILY PO
     Route: 048
     Dates: start: 20080204, end: 20080204

REACTIONS (1)
  - DELIRIUM [None]
